FAERS Safety Report 15310008 (Version 3)
Quarter: 2018Q3

REPORT INFORMATION
  Report Type: Spontaneous
  Country: FR (occurrence: FR)
  Receive Date: 20180823
  Receipt Date: 20180904
  Transmission Date: 20181010
  Serious: Yes (Death, Life-Threatening, Hospitalization, Other)
  Sender: FDA-Public Use
  Company Number: FR-AXELLIA-001882

PATIENT
  Age: 80 Year
  Sex: Male

DRUGS (5)
  1. AZITHROMYCIN ANHYDROUS. [Interacting]
     Active Substance: AZITHROMYCIN ANHYDROUS
     Indication: RESPIRATORY TRACT INFECTION
     Dosage: FROM DAY 3 TO DAY 9
  2. VORICONAZOLE. [Suspect]
     Active Substance: VORICONAZOLE
     Indication: BRONCHOPULMONARY ASPERGILLOSIS
     Dosage: ON DAY 3,ON DAY 8: 400 MG MORNING 200 MG NIGHT;FROM DAY 4 TO DAY 7
  3. PONATINIB [Interacting]
     Active Substance: PONATINIB
     Indication: ACUTE MYELOID LEUKAEMIA RECURRENT
  4. ICLUSIG [Interacting]
     Active Substance: PONATINIB
     Indication: ACUTE MYELOID LEUKAEMIA
     Dosage: 45 MG, QD AT NOON
  5. AZITHROMYCIN ANHYDROUS. [Interacting]
     Active Substance: AZITHROMYCIN ANHYDROUS
     Dosage: ON DAY 2
     Route: 065

REACTIONS (4)
  - Drug level above therapeutic [Fatal]
  - Drug interaction [Fatal]
  - Hepatocellular injury [Fatal]
  - Acute hepatic failure [Fatal]
